FAERS Safety Report 7626481-8 (Version None)
Quarter: 2011Q3

REPORT INFORMATION
  Report Type: 
  Country: None (occurrence: None)
  Receive Date: 20110721
  Receipt Date: 20110418
  Transmission Date: 20111222
  Serious: No
  Sender: FDA-Public Use
  Company Number: US-NOVEN-11US002299

PATIENT
  Age: 57 Year
  Sex: Female

DRUGS (1)
  1. FENTANYL [Suspect]
     Indication: PAIN
     Dosage: 75 UG, Q72H
     Route: 062
     Dates: start: 20050101

REACTIONS (8)
  - NAUSEA [None]
  - TREMOR [None]
  - INSOMNIA [None]
  - YAWNING [None]
  - PRODUCT QUALITY ISSUE [None]
  - MALAISE [None]
  - DRUG ADMINISTRATION ERROR [None]
  - INADEQUATE ANALGESIA [None]
